FAERS Safety Report 15363606 (Version 5)
Quarter: 2019Q4

REPORT INFORMATION
  Report Type: Spontaneous
  Country: US (occurrence: US)
  Receive Date: 20180907
  Receipt Date: 20191202
  Transmission Date: 20200122
  Serious: Yes (Hospitalization, Other)
  Sender: FDA-Public Use
  Company Number: US-VIFOR (INTERNATIONAL) INC.-VIT-2018-08814

PATIENT
  Age: 69 Year
  Sex: Male
  Weight: 108.05 kg

DRUGS (7)
  1. HUMALOG KWIKPEN [Concomitant]
     Active Substance: INSULIN LISPRO
  2. ALLOPURINOL. [Concomitant]
     Active Substance: ALLOPURINOL
  3. CYCLOBENZAPRINE HCL [Concomitant]
     Active Substance: CYCLOBENZAPRINE HYDROCHLORIDE
  4. ROPINIROLE HCL [Concomitant]
     Active Substance: ROPINIROLE HYDROCHLORIDE
  5. VELTASSA [Suspect]
     Active Substance: PATIROMER
     Indication: HYPERKALAEMIA
     Route: 048
     Dates: start: 20160318
  6. GLYBURIDE MICRONIZED [Concomitant]
  7. CATAPRES [Concomitant]
     Active Substance: CLONIDINE HYDROCHLORIDE

REACTIONS (11)
  - Eating disorder [Recovered/Resolved]
  - Psoriasis [Recovered/Resolved]
  - Dysstasia [Recovered/Resolved]
  - Diabetes mellitus [Not Recovered/Not Resolved]
  - Balance disorder [Recovered/Resolved]
  - Gait disturbance [Recovered/Resolved]
  - Renal failure [Not Recovered/Not Resolved]
  - Limb discomfort [Recovered/Resolved]
  - Muscle atrophy [Recovered/Resolved]
  - Chest pain [Recovered/Resolved]
  - Blood iron abnormal [Unknown]

NARRATIVE: CASE EVENT DATE: 20170917
